FAERS Safety Report 13518446 (Version 1)
Quarter: 2017Q2

REPORT INFORMATION
  Report Type: Spontaneous
  Country: JP (occurrence: JP)
  Receive Date: 20170505
  Receipt Date: 20170505
  Transmission Date: 20170830
  Serious: Yes (Hospitalization, Other)
  Sender: FDA-Public Use
  Company Number: JP-BAYER-2017-075856

PATIENT
  Age: 71 Year
  Sex: Male

DRUGS (5)
  1. AMLODIPINE [Concomitant]
     Active Substance: AMLODIPINE BESYLATE
     Route: 048
  2. INSULIN [Concomitant]
     Active Substance: INSULIN NOS
  3. TICLOPIDINE HYDROCHLORIDE. [Interacting]
     Active Substance: TICLOPIDINE HYDROCHLORIDE
     Route: 048
  4. ACETYLSALICYLIC ACID({=100 MG) [Suspect]
     Active Substance: ASPIRIN
     Route: 048
  5. ROSUVASTATIN CALCIUM. [Concomitant]
     Active Substance: ROSUVASTATIN CALCIUM
     Route: 048

REACTIONS (8)
  - Drug administration error [None]
  - Disturbance in attention [Not Recovered/Not Resolved]
  - Depressed level of consciousness [Recovered/Resolved]
  - Neurologic neglect syndrome [None]
  - Labelled drug-drug interaction medication error [None]
  - Cerebral haemorrhage [None]
  - Hemiparesis [None]
  - Gait disturbance [None]
